FAERS Safety Report 17402472 (Version 2)
Quarter: 2020Q1

REPORT INFORMATION
  Report Type: Spontaneous
  Country: US (occurrence: US)
  Receive Date: 20200211
  Receipt Date: 20200318
  Transmission Date: 20200409
  Serious: No
  Sender: FDA-Public Use
  Company Number: US-PFIZER INC-2020057162

PATIENT
  Age: 63 Year
  Sex: Female
  Weight: 145.6 kg

DRUGS (1)
  1. DETROL [Suspect]
     Active Substance: TOLTERODINE TARTRATE
     Indication: HYPERTONIC BLADDER
     Dosage: 2 MG, 2X/DAY
     Route: 048
     Dates: start: 201908

REACTIONS (1)
  - Drug ineffective [Not Recovered/Not Resolved]
